FAERS Safety Report 8943338 (Version 1)
Quarter: 2012Q4

REPORT INFORMATION
  Report Type: Spontaneous
  Country: GB (occurrence: None)
  Receive Date: 20121121
  Receipt Date: 20121121
  Transmission Date: 20130627
  Serious: Yes (Death)
  Sender: FDA-Public Use
  Company Number: AG-2012-1703

PATIENT
  Age: 62 Year
  Sex: Female
  Weight: 67 kg

DRUGS (3)
  1. CHLORAMBUCIL [Suspect]
     Indication: DRUG USE FOR UNKNOWN INDICATION
     Route: 048
     Dates: start: 20120608, end: 20120622
  2. DOMPERIDONE [Concomitant]
  3. HYPROMELLOSE (HYPROMELLOSE) [Concomitant]

REACTIONS (1)
  - Toxic epidermal necrolysis [None]
